FAERS Safety Report 19654412 (Version 1)
Quarter: 2021Q3

REPORT INFORMATION
  Report Type: Spontaneous
  Country: US (occurrence: US)
  Receive Date: 20210803
  Receipt Date: 20210803
  Transmission Date: 20211014
  Serious: No
  Sender: FDA-Public Use
  Company Number: US-BIODELIVERY SCIENCES INTERNATIONAL-2021BDSI0325

PATIENT
  Age: 53 Year
  Sex: Female
  Weight: 70.37 kg

DRUGS (2)
  1. BUPRENORPHINE. [Suspect]
     Active Substance: BUPRENORPHINE
     Indication: RESTLESS LEGS SYNDROME
     Route: 002
     Dates: start: 2020, end: 2020
  2. BUPRENORPHINE. [Suspect]
     Active Substance: BUPRENORPHINE
     Route: 002
     Dates: start: 202107

REACTIONS (8)
  - Drug ineffective for unapproved indication [Unknown]
  - Product adhesion issue [Unknown]
  - Off label use [Unknown]
  - Oral administration complication [Unknown]
  - Wrong technique in product usage process [Not Recovered/Not Resolved]
  - Product physical consistency issue [Unknown]
  - Product solubility abnormal [Unknown]
  - Off label use [Unknown]

NARRATIVE: CASE EVENT DATE: 2020
